FAERS Safety Report 5615083-0 (Version None)
Quarter: 2008Q1

REPORT INFORMATION
  Report Type: 
  Country: None (occurrence: None)
  Receive Date: 20080206
  Receipt Date: 20070424
  Transmission Date: 20080703
  Serious: No
  Sender: FDA-Public Use
  Company Number: A0636331A

PATIENT
  Age: 71 Year
  Sex: Female
  Weight: 55 kg

DRUGS (6)
  1. ARIXTRA [Suspect]
     Indication: THROMBOSIS PROPHYLAXIS
     Route: 058
     Dates: start: 20050801
  2. LOMOTIL [Concomitant]
     Indication: INFLAMMATORY BOWEL DISEASE
     Route: 048
     Dates: start: 20060701
  3. DONNATAL [Concomitant]
     Indication: INFLAMMATORY BOWEL DISEASE
     Route: 048
     Dates: start: 20050501
  4. TRANXENE [Concomitant]
     Indication: ANXIETY
     Route: 048
     Dates: start: 19880101
  5. RANITIDINE [Concomitant]
     Dosage: 150MG TWICE PER DAY
     Route: 048
     Dates: start: 20030101
  6. ESTRADERM [Concomitant]
     Indication: MENOPAUSE
     Route: 062
     Dates: start: 20060701

REACTIONS (3)
  - INJECTION SITE CALCIFICATION [None]
  - INJECTION SITE NODULE [None]
  - NODULE ON EXTREMITY [None]
